FAERS Safety Report 8207544-5 (Version None)
Quarter: 2012Q1

REPORT INFORMATION
  Report Type: 
  Country: None (occurrence: None)
  Receive Date: 20120314
  Receipt Date: 20120305
  Transmission Date: 20120608
  Serious: Yes (Other)
  Sender: FDA-Public Use
  Company Number: GB-TEVA-306913ISR

PATIENT
  Age: 44 Year
  Sex: Female
  Weight: 52.1 kg

DRUGS (5)
  1. MIRENA [Suspect]
     Route: 015
     Dates: start: 20071113, end: 20111012
  2. OXYBUTYNIN [Concomitant]
  3. VALPROIC ACID [Suspect]
     Dates: start: 20100426, end: 20110701
  4. CITALOPRAM [Concomitant]
  5. LORATADINE [Concomitant]

REACTIONS (3)
  - PREGNANCY WITH CONTRACEPTIVE DEVICE [None]
  - ABORTION SPONTANEOUS [None]
  - MATERNAL EXPOSURE DURING PREGNANCY [None]
